FAERS Safety Report 9106940 (Version 2)
Quarter: 2013Q1

REPORT INFORMATION
  Report Type: Spontaneous
  Country: US (occurrence: US)
  Receive Date: 20130221
  Receipt Date: 20130306
  Transmission Date: 20140127
  Serious: Yes (Hospitalization)
  Sender: FDA-Public Use
  Company Number: US-GILEAD-2013-0070132

PATIENT
  Sex: Female

DRUGS (4)
  1. LETAIRIS [Suspect]
     Indication: COR PULMONALE CHRONIC
     Dosage: 10 MG, QD
     Dates: start: 20090908
  2. LETAIRIS [Suspect]
     Dosage: 10 MG, QD
     Dates: start: 20090909
  3. REVATIO [Concomitant]
  4. LASIX                              /00032601/ [Concomitant]

REACTIONS (5)
  - Unevaluable event [Unknown]
  - Unresponsive to stimuli [Unknown]
  - Acute myocardial infarction [Unknown]
  - Pneumonia [Unknown]
  - Acute respiratory failure [Unknown]
